FAERS Safety Report 5402161-4 (Version None)
Quarter: 2007Q3

REPORT INFORMATION
  Report Type: 
  Country: None (occurrence: None)
  Receive Date: 20070730
  Receipt Date: 20070718
  Transmission Date: 20080115
  Serious: Yes (Hospitalization)
  Sender: FDA-Public Use
  Company Number: 158982USA

PATIENT
  Sex: Female

DRUGS (1)
  1. AZILECT [Suspect]

REACTIONS (3)
  - CONFUSIONAL STATE [None]
  - HYPERTENSION [None]
  - LETHARGY [None]
